FAERS Safety Report 8010947-5 (Version None)
Quarter: 2011Q4

REPORT INFORMATION
  Report Type: 
  Country: None (occurrence: None)
  Receive Date: 20111228
  Receipt Date: 20111213
  Transmission Date: 20120403
  Serious: Yes (Death, Disabling)
  Sender: FDA-Public Use
  Company Number: US-WATSON-2011-21615

PATIENT
  Sex: Male

DRUGS (1)
  1. FENTANYL CITRATE [Suspect]
     Indication: PAIN
     Dosage: ^TOOK, USED, CONSUMED, INGESTED^
     Route: 062
     Dates: start: 20090602, end: 20090609

REACTIONS (5)
  - OVERDOSE [None]
  - INCORRECT ROUTE OF DRUG ADMINISTRATION [None]
  - INJURY [None]
  - FATIGUE [None]
  - DISABILITY [None]
